FAERS Safety Report 5026113-1 (Version None)
Quarter: 2006Q2

REPORT INFORMATION
  Report Type: 
  Country: None (occurrence: None)
  Receive Date: 20060612
  Receipt Date: 20060612
  Transmission Date: 20061013
  Serious: Yes (Hospitalization)
  Sender: FDA-Public Use
  Company Number: None

PATIENT
  Sex: Male
  Weight: 82.3732 kg

DRUGS (3)
  1. IRESSA [Suspect]
     Indication: METASTATIC NEOPLASM
     Dosage: 250 MG QD PO
     Route: 048
  2. COUMADIN [Concomitant]
  3. PREVACID [Concomitant]

REACTIONS (6)
  - ABDOMINAL PAIN UPPER [None]
  - BLOOD AMYLASE INCREASED [None]
  - HEPATITIS [None]
  - LIPASE INCREASED [None]
  - LIVER FUNCTION TEST ABNORMAL [None]
  - PNEUMONITIS [None]
